FAERS Safety Report 7956135-X (Version None)
Quarter: 2011Q4

REPORT INFORMATION
  Report Type: 
  Country: None (occurrence: None)
  Receive Date: 20111116
  Receipt Date: 20111102
  Transmission Date: 20120403
  Serious: Yes (Hospitalization)
  Sender: FDA-Public Use
  Company Number: 2011MZ000059

PATIENT
  Age: 16 Year
  Sex: Male

DRUGS (3)
  1. MIDAZOLAM [Concomitant]
  2. XEOMIN [Suspect]
     Indication: SALIVARY HYPERSECRETION
     Dosage: 100 UNITS;X1;
  3. XEOMIN [Suspect]
     Indication: BRUXISM
     Dosage: 100 UNITS;X1;

REACTIONS (4)
  - APTYALISM [None]
  - SALIVARY GLAND CALCULUS [None]
  - SIALOADENITIS [None]
  - SALIVARY DUCT OBSTRUCTION [None]
